FAERS Safety Report 5998017-9 (Version None)
Quarter: 2008Q4

REPORT INFORMATION
  Report Type: 
  Country: None (occurrence: None)
  Receive Date: 20081211
  Receipt Date: 20081128
  Transmission Date: 20090506
  Serious: Yes (Hospitalization)
  Sender: FDA-Public Use
  Company Number: WAES 0811USA03761

PATIENT
  Age: 71 Year
  Sex: Male
  Weight: 52.6173 kg

DRUGS (9)
  1. VORINOSTAT [Suspect]
     Indication: MYELODYSPLASTIC SYNDROME
     Dosage: 200 MG/TID/PO
     Route: 048
     Dates: start: 20080904, end: 20080917
  2. VORINOSTAT [Suspect]
     Indication: MYELODYSPLASTIC SYNDROME
     Dosage: 200 MG/TID/PO
     Route: 048
     Dates: start: 20080925, end: 20081007
  3. VORINOSTAT [Suspect]
     Indication: MYELODYSPLASTIC SYNDROME
     Dosage: 200 MG/TID/PO
     Route: 048
     Dates: start: 20081016, end: 20081030
  4. VORINOSTAT [Suspect]
     Indication: MYELODYSPLASTIC SYNDROME
     Dosage: 200 MG/TID/PO
     Route: 048
     Dates: start: 20081106, end: 20081117
  5. ACTOS [Concomitant]
  6. GLUCOTROL [Concomitant]
  7. CYANOCOBALAMIN [Concomitant]
  8. VITAMIN E [Concomitant]
  9. VITAMINS [Concomitant]

REACTIONS (2)
  - PERICARDIAL EFFUSION [None]
  - PLEURAL EFFUSION [None]
